FAERS Safety Report 5341846-5 (Version None)
Quarter: 2007Q2

REPORT INFORMATION
  Report Type: 
  Country: None (occurrence: None)
  Receive Date: 20070601
  Receipt Date: 20070523
  Transmission Date: 20071010
  Serious: Yes (Other)
  Sender: FDA-Public Use
  Company Number: US-ELI_LILLY_AND_COMPANY-US200705005780

PATIENT
  Age: 56 Year
  Sex: Male

DRUGS (2)
  1. HUMALOG [Suspect]
     Indication: DIABETES MELLITUS NON-INSULIN-DEPENDENT
     Dates: start: 19970101
  2. LANTUS [Concomitant]

REACTIONS (6)
  - BACK INJURY [None]
  - BLOOD GLUCOSE DECREASED [None]
  - DIABETIC RETINOPATHY [None]
  - EYE HAEMORRHAGE [None]
  - INTERVERTEBRAL DISC PROTRUSION [None]
  - NEURALGIA [None]
